FAERS Safety Report 5902532-3 (Version None)
Quarter: 2008Q3

REPORT INFORMATION
  Report Type: 
  Country: None (occurrence: None)
  Receive Date: 20080929
  Receipt Date: 20080925
  Transmission Date: 20090109
  Serious: Yes (Hospitalization)
  Sender: FDA-Public Use
  Company Number: US-MERCK-0809USA03564

PATIENT
  Age: 79 Year
  Sex: Female

DRUGS (2)
  1. FOSAMAX [Suspect]
     Route: 065
     Dates: start: 20060501
  2. [THERAPY UNSPECIFIED] [Concomitant]
     Route: 065

REACTIONS (1)
  - OESOPHAGEAL PERFORATION [None]
